FAERS Safety Report 19960590 (Version 2)
Quarter: 2021Q4

REPORT INFORMATION
  Report Type: Spontaneous
  Country: US (occurrence: US)
  Receive Date: 20211015
  Receipt Date: 20211025
  Transmission Date: 20220303
  Serious: Yes (Disabling)
  Sender: FDA-Public Use
  Company Number: US-CELLTRION INC.-2021US013984

PATIENT

DRUGS (1)
  1. TRUXIMA [Suspect]
     Active Substance: RITUXIMAB-ABBS
     Indication: Chronic inflammatory demyelinating polyradiculoneuropathy
     Dosage: TOTAL OF 3 DOSES; ^GOT A DOSE IN THE SUMMER^
     Route: 042
     Dates: end: 20210820

REACTIONS (2)
  - Therapy non-responder [Unknown]
  - Off label use [Unknown]
